FAERS Safety Report 11977900 (Version 2)
Quarter: 2016Q1

REPORT INFORMATION
  Report Type: Spontaneous
  Country: FR (occurrence: FR)
  Receive Date: 20160129
  Receipt Date: 20160226
  Transmission Date: 20160526
  Serious: Yes (Other)
  Sender: FDA-Public Use
  Company Number: FR-AMGEN-FRASP2016008269

PATIENT
  Age: 34 Year
  Sex: Female

DRUGS (1)
  1. XGEVA [Suspect]
     Active Substance: DENOSUMAB
     Indication: PRODUCT USED FOR UNKNOWN INDICATION
     Dosage: 120 MG, UNK
     Route: 065
     Dates: start: 201211

REACTIONS (4)
  - Intentional product misuse [Unknown]
  - Tooth loss [Unknown]
  - Osteonecrosis of jaw [Unknown]
  - Tooth extraction [Recovered/Resolved]
